FAERS Safety Report 10915541 (Version 1)
Quarter: 2015Q1

REPORT INFORMATION
  Report Type: Spontaneous
  Country: US (occurrence: None)
  Receive Date: 20150311
  Receipt Date: 20150311
  Transmission Date: 20150721
  Serious: Yes (Other)
  Sender: FDA-Public Use
  Company Number: None

PATIENT
  Age: 61 Year
  Sex: Female
  Weight: 81.19 kg

DRUGS (11)
  1. ASPIRIN. [Concomitant]
     Active Substance: ASPIRIN
  2. FERROUS SULFATE [Concomitant]
     Active Substance: FERROUS SULFATE\FERROUS SULFATE, DRIED
  3. PRAVASTATIN [Concomitant]
     Active Substance: PRAVASTATIN\PRAVASTATIN SODIUM
  4. FISH OIL [Concomitant]
     Active Substance: FISH OIL
  5. LOSARTAN [Concomitant]
     Active Substance: LOSARTAN
  6. SAPHRIS [Suspect]
     Active Substance: ASENAPINE MALEATE
     Indication: BIPOLAR DISORDER
     Dosage: 5 MG IN AM 20 - DECREASED 10MG AT HS
     Route: 060
     Dates: start: 20140602, end: 20141229
  7. VITAMIN B12 [Concomitant]
     Active Substance: CYANOCOBALAMIN
  8. FENOFIBRATE. [Concomitant]
     Active Substance: FENOFIBRATE
  9. COQ10 [Concomitant]
     Active Substance: UBIDECARENONE
  10. VITAMIN D3 [Concomitant]
     Active Substance: CHOLECALCIFEROL
  11. OMEPRAZOLE. [Concomitant]
     Active Substance: OMEPRAZOLE

REACTIONS (5)
  - Sleep disorder [None]
  - Dizziness [None]
  - Cognitive disorder [None]
  - Anxiety [None]
  - Derealisation [None]

NARRATIVE: CASE EVENT DATE: 20141223
